FAERS Safety Report 21976299 (Version 1)
Quarter: 2023Q1

REPORT INFORMATION
  Report Type: Spontaneous
  Country: US (occurrence: US)
  Receive Date: 20230210
  Receipt Date: 20230210
  Transmission Date: 20230417
  Serious: No
  Sender: FDA-Public Use
  Company Number: US-JNJFOC-20230207221

PATIENT
  Age: 30 Year
  Sex: Female

DRUGS (1)
  1. WOMENS ROGAINE [Suspect]
     Active Substance: MINOXIDIL
     Indication: Alopecia
     Route: 061
     Dates: start: 202301, end: 2023

REACTIONS (3)
  - Application site pain [Recovering/Resolving]
  - Application site erythema [Recovering/Resolving]
  - Application site inflammation [Recovering/Resolving]

NARRATIVE: CASE EVENT DATE: 20230101
